FAERS Safety Report 7570970-1 (Version None)
Quarter: 2011Q2

REPORT INFORMATION
  Report Type: 
  Country: None (occurrence: None)
  Receive Date: 20110624
  Receipt Date: 20110613
  Transmission Date: 20111010
  Serious: Yes (Hospitalization, Other)
  Sender: FDA-Public Use
  Company Number: JP-ROCHE-636943

PATIENT
  Sex: Female

DRUGS (9)
  1. PROGRAF [Concomitant]
     Route: 048
     Dates: start: 20090304
  2. VOLTAREN [Concomitant]
     Dosage: FORM: INTERCALATING AGENT, SUPPOSITORIAE RECTALE
     Route: 054
     Dates: start: 20090203
  3. PREDNISOLONE [Concomitant]
     Dosage: FORM: ORAL FORMULATION NOS
     Route: 048
     Dates: start: 20041025
  4. TOCILIZUMAB [Suspect]
     Route: 041
     Dates: start: 20090525, end: 20090525
  5. MOBIC [Concomitant]
     Route: 048
     Dates: start: 20080705
  6. VITAMEDIN [Concomitant]
     Route: 048
     Dates: start: 20090310
  7. TOCILIZUMAB [Suspect]
     Indication: RHEUMATOID ARTHRITIS
     Route: 041
     Dates: start: 20090323, end: 20090323
  8. TOCILIZUMAB [Suspect]
     Route: 041
     Dates: start: 20090420, end: 20090420
  9. MECOBALAMIN [Concomitant]
     Dosage: DRUG: RETICOLAN
     Route: 048
     Dates: start: 20080705

REACTIONS (4)
  - PERICARDITIS RHEUMATIC [None]
  - SHOCK [None]
  - ANGINA PECTORIS [None]
  - HYPERSENSITIVITY [None]
